FAERS Safety Report 18621282 (Version 1)
Quarter: 2020Q4

REPORT INFORMATION
  Report Type: Spontaneous
  Country: US (occurrence: US)
  Receive Date: 20201215
  Receipt Date: 20201215
  Transmission Date: 20210114
  Serious: Yes (Other)
  Sender: FDA-Public Use
  Company Number: US-CURRAX PHARMACEUTICALS LLC-US-2020CUR000978

PATIENT
  Sex: Male

DRUGS (2)
  1. MAGNESIUM OXIDE 400 MG [Suspect]
     Active Substance: MAGNESIUM OXIDE
     Indication: PRODUCT USED FOR UNKNOWN INDICATION
     Dosage: UNK
     Route: 065
  2. POTASSIUM [Suspect]
     Active Substance: POTASSIUM
     Indication: PRODUCT USED FOR UNKNOWN INDICATION
     Dosage: UNK
     Route: 065

REACTIONS (5)
  - Dyspnoea [Unknown]
  - Fall [Unknown]
  - Anaemia [Unknown]
  - Cardiac failure congestive [Unknown]
  - Rib fracture [Unknown]
